FAERS Safety Report 5595916-7 (Version None)
Quarter: 2008Q1

REPORT INFORMATION
  Report Type: 
  Country: None (occurrence: None)
  Receive Date: 20080118
  Receipt Date: 20080107
  Transmission Date: 20080703
  Serious: Yes (Hospitalization)
  Sender: FDA-Public Use
  Company Number: US-GILEAD-2008-0014850

PATIENT
  Sex: Male
  Weight: 69.916 kg

DRUGS (7)
  1. EMTRICITABINE/TENOFOVIR DISOPROXIL FUMARATE [Suspect]
     Indication: HEPATITIS B
     Route: 048
     Dates: start: 20070910
  2. VITAMIN CAP [Concomitant]
     Indication: VITAMIN SUPPLEMENTATION
     Dates: start: 20070701
  3. CIPROFLOXACIN [Concomitant]
     Indication: PERITONITIS BACTERIAL
     Dates: start: 20070701
  4. LASIX [Concomitant]
     Indication: ASCITES
     Dates: start: 20070701
  5. ALDACTONE [Concomitant]
     Indication: ASCITES
     Dates: start: 20070701
  6. FOLIC ACID [Concomitant]
     Indication: VITAMIN SUPPLEMENTATION
     Dates: start: 20070701
  7. REGLAN [Concomitant]
     Indication: NAUSEA
     Dates: start: 20070701

REACTIONS (1)
  - PERITONITIS BACTERIAL [None]
